FAERS Safety Report 4990926-2 (Version None)
Quarter: 2006Q2

REPORT INFORMATION
  Report Type: 
  Country: None (occurrence: None)
  Receive Date: 20060428
  Receipt Date: 20060413
  Transmission Date: 20061013
  Serious: Yes (Other)
  Sender: FDA-Public Use
  Company Number: 2006-BP-04244RO

PATIENT
  Age: 65 Year
  Sex: Female

DRUGS (5)
  1. METHOTREXATE [Suspect]
     Dosage: IT
     Route: 037
  2. MEGACE [Concomitant]
  3. CLONAZEPAM [Concomitant]
  4. OMEPRAZOLE [Concomitant]
  5. PHENYTOIN [Concomitant]

REACTIONS (4)
  - BLOOD URIC ACID DECREASED [None]
  - CONFUSIONAL STATE [None]
  - HYPONATRAEMIA [None]
  - LETHARGY [None]
